FAERS Safety Report 9258717 (Version 1)
Quarter: 2013Q2

REPORT INFORMATION
  Report Type: Spontaneous
  Country: US (occurrence: US)
  Receive Date: 20130426
  Receipt Date: 20130426
  Transmission Date: 20140414
  Serious: Yes (Hospitalization)
  Sender: FDA-Public Use
  Company Number: US-PFIZER INC-2013125510

PATIENT
  Age: 27 Year
  Sex: Female

DRUGS (3)
  1. GABAPENTIN [Suspect]
     Indication: NEURALGIA
     Dosage: 600 MG, UNK
  2. OXYCONTIN [Suspect]
     Dosage: UNK
  3. ROXICODONE [Suspect]
     Indication: BREAKTHROUGH PAIN
     Dosage: 15 MG, UNK

REACTIONS (2)
  - Complex regional pain syndrome [Unknown]
  - Localised infection [Unknown]
